FAERS Safety Report 6066101-X (Version None)
Quarter: 2009Q1

REPORT INFORMATION
  Report Type: 
  Country: None (occurrence: None)
  Receive Date: 20090130
  Receipt Date: 20090122
  Transmission Date: 20090719
  Serious: Yes (Other)
  Sender: FDA-Public Use
  Company Number: 2009-00202

PATIENT
  Age: 70 Year
  Sex: Female
  Weight: 94.4 kg

DRUGS (8)
  1. VELCADE [Suspect]
     Indication: MULTIPLE MYELOMA
     Dosage: 1.3 MG/M2, INTRAVENOUS
     Route: 042
     Dates: start: 20081006, end: 20090113
  2. DEXAMETHASONE TAB [Suspect]
     Indication: MULTIPLE MYELOMA
     Dosage: 20 MG, ORAL
     Route: 048
     Dates: start: 20081006, end: 20090113
  3. FRUSEMIDE (FUROSEMIDE) [Concomitant]
  4. ATENOLOL [Concomitant]
  5. ENALAPRIL MALEATE [Concomitant]
  6. FLUTICASONE PROPIONATE [Concomitant]
  7. BENDROFLUAZIDE (BENDROFLUMETHIAZIDE) [Concomitant]
  8. FUROSEMIDE (FUROSEMIDE) [Concomitant]

REACTIONS (1)
  - ATRIAL FIBRILLATION [None]
